FAERS Safety Report 16095343 (Version 1)
Quarter: 2019Q1

REPORT INFORMATION
  Report Type: Other
  Country: CA (occurrence: CA)
  Receive Date: 20190320
  Receipt Date: 20190320
  Transmission Date: 20190418
  Serious: Yes (Other)
  Sender: FDA-Public Use
  Company Number: CA-BECTON DICKINSON-2019BDN00099

PATIENT
  Age: 48 Year
  Sex: Female

DRUGS (4)
  1. CHLORHEXIDINE [Suspect]
     Active Substance: CHLORHEXIDINE
     Indication: SURGERY
     Dosage: 2 %
     Route: 061
  2. MAXALT [Concomitant]
     Active Substance: RIZATRIPTAN BENZOATE
  3. CYCLOBENZAPRINE. [Concomitant]
     Active Substance: CYCLOBENZAPRINE
  4. ACETAMINOPHEN. [Concomitant]
     Active Substance: ACETAMINOPHEN

REACTIONS (3)
  - Feeling hot [Unknown]
  - Erythema [Unknown]
  - Pruritus [Unknown]
